FAERS Safety Report 17207581 (Version 1)
Quarter: 2019Q4

REPORT INFORMATION
  Report Type: Spontaneous
  Country: IT (occurrence: IT)
  Receive Date: 20191227
  Receipt Date: 20191227
  Transmission Date: 20200122
  Serious: Yes (Hospitalization)
  Sender: FDA-Public Use
  Company Number: IT-MYLANLABS-2019M1126937

PATIENT
  Age: 82 Year
  Sex: Female

DRUGS (7)
  1. MEDIPO [Concomitant]
     Active Substance: SIMVASTATIN
     Dosage: UNK
  2. PRAZENE [Concomitant]
     Active Substance: PRAZEPAM
     Dosage: UNK
  3. BLOPRESID [Interacting]
     Active Substance: CANDESARTAN CILEXETIL\HYDROCHLOROTHIAZIDE
     Indication: HYPERTENSION
     Dosage: 1 DOSAGE FORM, QD
     Dates: start: 20190101, end: 20190715
  4. CARDIOASPIRIN [Concomitant]
     Active Substance: ASPIRIN
     Dosage: UNK
  5. LANSOX [Concomitant]
     Active Substance: LANSOPRAZOLE
     Dosage: UNK
  6. MIRTAZAPINE. [Suspect]
     Active Substance: MIRTAZAPINE
     Indication: DEPRESSION
     Dosage: 15 MILLIGRAM, QD
     Route: 048
     Dates: start: 20190101, end: 20190715
  7. DAPAROX                            /00830803/ [Interacting]
     Active Substance: PAROXETINE MESYLATE
     Indication: DEPRESSION
     Dosage: 1 DOSAGE FORM, QD
     Route: 048
     Dates: start: 20190101, end: 20190715

REACTIONS (4)
  - Paraesthesia [Recovering/Resolving]
  - Drug interaction [Unknown]
  - Hyponatraemia [Recovering/Resolving]
  - Vertigo [Recovering/Resolving]

NARRATIVE: CASE EVENT DATE: 20190715
